FAERS Safety Report 7294506-8 (Version None)
Quarter: 2011Q1

REPORT INFORMATION
  Report Type: 
  Country: None (occurrence: None)
  Receive Date: 20110216
  Receipt Date: 20110202
  Transmission Date: 20110831
  Serious: No
  Sender: FDA-Public Use
  Company Number: US-BIOGENIDEC-2010BI017914

PATIENT
  Age: 51 Year
  Sex: Female

DRUGS (1)
  1. TYSABRI [Suspect]
     Indication: MULTIPLE SCLEROSIS
     Route: 042
     Dates: start: 20100108, end: 20100305

REACTIONS (6)
  - ASTHENIA [None]
  - MALAISE [None]
  - URINARY RETENTION [None]
  - FEELING ABNORMAL [None]
  - VISUAL IMPAIRMENT [None]
  - URINARY INCONTINENCE [None]
